FAERS Safety Report 13966277 (Version 1)
Quarter: 2017Q3

REPORT INFORMATION
  Report Type: Report from Study
  Country: GB (occurrence: GB)
  Receive Date: 20170913
  Receipt Date: 20170913
  Transmission Date: 20171128
  Serious: Yes (Other)
  Sender: FDA-Public Use
  Company Number: PHFR2015GB009003

PATIENT
  Sex: Female

DRUGS (2)
  1. GILENYA [Suspect]
     Active Substance: FINGOLIMOD HYDROCHLORIDE
     Indication: MULTIPLE SCLEROSIS
     Dosage: 0.5 MG, UNK
     Route: 065
     Dates: start: 20140417
  2. GILENYA [Suspect]
     Active Substance: FINGOLIMOD HYDROCHLORIDE
     Dosage: 0.5 MG, QD
     Route: 065
     Dates: start: 20160311

REACTIONS (16)
  - Sensorimotor disorder [Recovered/Resolved]
  - Insomnia [Unknown]
  - Gait disturbance [Unknown]
  - Asthenia [Unknown]
  - Joint instability [Unknown]
  - Memory impairment [Recovered/Resolved]
  - Paraesthesia [Unknown]
  - Limb discomfort [Unknown]
  - Amnesia [Not Recovered/Not Resolved]
  - Micturition urgency [Unknown]
  - Fatigue [Unknown]
  - Musculoskeletal stiffness [Unknown]
  - Cerebellar syndrome [Unknown]
  - Decreased appetite [Unknown]
  - Romberg test positive [Unknown]
  - Vertigo [Unknown]
